FAERS Safety Report 11013102 (Version 2)
Quarter: 2015Q2

REPORT INFORMATION
  Report Type: Spontaneous
  Country: US (occurrence: US)
  Receive Date: 20150411
  Receipt Date: 20150525
  Transmission Date: 20150821
  Serious: Yes (Hospitalization, Disabling)
  Sender: FDA-Public Use
  Company Number: US-JNJFOC-20140513973

PATIENT
  Age: 61 Year
  Sex: Female
  Weight: 63.5 kg

DRUGS (6)
  1. L-THYROXINE [Concomitant]
     Active Substance: LEVOTHYROXINE
     Indication: HYPOTHYROIDISM
     Route: 065
     Dates: start: 2007
  2. AMITRIPTYLIN [Concomitant]
     Active Substance: AMITRIPTYLINE
     Indication: NEUROPATHY PERIPHERAL
     Route: 065
     Dates: start: 2009
  3. REMICADE [Suspect]
     Active Substance: INFLIXIMAB
     Indication: RHEUMATOID ARTHRITIS
     Route: 042
     Dates: start: 2007
  4. REMICADE [Suspect]
     Active Substance: INFLIXIMAB
     Indication: RHEUMATOID ARTHRITIS
     Route: 042
     Dates: start: 20140419, end: 20140419
  5. AMITRIPTYLIN [Concomitant]
     Active Substance: AMITRIPTYLINE
     Indication: DEPRESSION
     Route: 065
     Dates: start: 2009
  6. AMITRIPTYLIN [Concomitant]
     Active Substance: AMITRIPTYLINE
     Indication: ANXIETY
     Route: 065
     Dates: start: 2009

REACTIONS (4)
  - Infusion site cellulitis [Recovering/Resolving]
  - Extravasation [Unknown]
  - Osteomyelitis [Recovering/Resolving]
  - Abscess [Recovering/Resolving]

NARRATIVE: CASE EVENT DATE: 20140503
